FAERS Safety Report 5955290-0 (Version None)
Quarter: 2008Q4

REPORT INFORMATION
  Report Type: 
  Country: None (occurrence: None)
  Receive Date: 20081117
  Receipt Date: 20081106
  Transmission Date: 20090506
  Serious: Yes (Other)
  Sender: FDA-Public Use
  Company Number: PHHY2008BR27550

PATIENT
  Age: 79 Year
  Sex: Female

DRUGS (4)
  1. EXELON [Suspect]
     Indication: DEMENTIA ALZHEIMER'S TYPE
     Dosage: 1.5 MG, BID
     Dates: start: 20070101
  2. EXELON [Suspect]
     Dosage: 3 MG, QD
  3. EXELON [Suspect]
     Dosage: 9 MG/5CM^2
     Route: 062
  4. VITAMINS [Concomitant]
     Dosage: 2 TABLETS DAILY
     Route: 048

REACTIONS (10)
  - DISEASE PROGRESSION [None]
  - DIZZINESS [None]
  - DRUG INEFFECTIVE [None]
  - EATING DISORDER [None]
  - GAIT DISTURBANCE [None]
  - HYPERTENSION [None]
  - INSOMNIA [None]
  - LABYRINTHITIS [None]
  - NAUSEA [None]
  - RETCHING [None]
